FAERS Safety Report 11491158 (Version 1)
Quarter: 2015Q3

REPORT INFORMATION
  Report Type: Spontaneous
  Country: US (occurrence: US)
  Receive Date: 20150910
  Receipt Date: 20150910
  Transmission Date: 20151125
  Serious: No
  Sender: FDA-Public Use
  Company Number: US-JNJFOC-20150810887

PATIENT
  Age: 89 Year
  Sex: Female
  Weight: 54.43 kg

DRUGS (10)
  1. MULTIVITAMINS [Concomitant]
     Active Substance: VITAMINS
     Indication: NUTRITIONAL SUPPLEMENTATION
     Route: 065
  2. VACCINIUM MACROCARPON [Concomitant]
     Indication: NUTRITIONAL SUPPLEMENTATION
     Route: 065
  3. VITAMIN-SUPPLEMENTS [Concomitant]
     Indication: NUTRITIONAL SUPPLEMENTATION
     Route: 065
  4. LUTEIN [Concomitant]
     Active Substance: LUTEIN
     Indication: NUTRITIONAL SUPPLEMENTATION
     Route: 065
  5. MACULA SUPPORT [Concomitant]
     Indication: NUTRITIONAL SUPPLEMENTATION
     Route: 065
  6. BIOTIN [Concomitant]
     Active Substance: BIOTIN
     Indication: NUTRITIONAL SUPPLEMENTATION
     Route: 065
  7. IMODIUM A-D [Suspect]
     Active Substance: LOPERAMIDE HYDROCHLORIDE
     Route: 048
  8. NAC SUPPLEMENT [Concomitant]
     Indication: NUTRITIONAL SUPPLEMENTATION
     Route: 065
  9. IMODIUM A-D [Suspect]
     Active Substance: LOPERAMIDE HYDROCHLORIDE
     Indication: DIARRHOEA
     Route: 048
  10. BRAIN SHIELD [Concomitant]
     Indication: NUTRITIONAL SUPPLEMENTATION
     Route: 065

REACTIONS (3)
  - Drug ineffective [Unknown]
  - Inappropriate schedule of drug administration [Unknown]
  - Expired product administered [Unknown]
